FAERS Safety Report 5302114-0 (Version None)
Quarter: 2007Q2

REPORT INFORMATION
  Report Type: 
  Country: None (occurrence: None)
  Receive Date: 20070419
  Receipt Date: 20070412
  Transmission Date: 20071010
  Serious: Yes (Hospitalization)
  Sender: FDA-Public Use
  Company Number: FR-GLAXOSMITHKLINE-B0466574A

PATIENT
  Age: 44 Year
  Sex: Female

DRUGS (4)
  1. AUGMENTIN '125' [Suspect]
     Dosage: 1TAB SINGLE DOSE
     Route: 048
     Dates: start: 20070316, end: 20070316
  2. CIPROFLOXACIN HCL [Suspect]
     Dosage: 1TAB SINGLE DOSE
     Route: 048
     Dates: start: 20070316, end: 20070316
  3. OMNIPAQUE 140 [Suspect]
     Indication: ABDOMINAL X-RAY
     Dosage: 150ML SINGLE DOSE
     Route: 042
     Dates: start: 20070316, end: 20070316
  4. DEROXAT [Concomitant]
     Dosage: 20MG PER DAY
     Route: 048

REACTIONS (15)
  - ABDOMINAL PAIN [None]
  - ABDOMINAL PAIN UPPER [None]
  - ANGIOEDEMA [None]
  - C-REACTIVE PROTEIN INCREASED [None]
  - DIARRHOEA [None]
  - DISCOMFORT [None]
  - ERYTHEMA [None]
  - HYPERHIDROSIS [None]
  - HYPERVENTILATION [None]
  - MUSCULAR WEAKNESS [None]
  - OEDEMA [None]
  - PAINFUL RESPIRATION [None]
  - PRURITUS GENERALISED [None]
  - RESPIRATORY DISORDER [None]
  - VOMITING [None]
